FAERS Safety Report 20520190 (Version 2)
Quarter: 2022Q1

REPORT INFORMATION
  Report Type: Spontaneous
  Country: CZ (occurrence: CZ)
  Receive Date: 20220225
  Receipt Date: 20220228
  Transmission Date: 20220423
  Serious: Yes (Death, Hospitalization, Other)
  Sender: FDA-Public Use
  Company Number: CZ-PFIZER INC-202200292802

PATIENT
  Age: 44 Year
  Sex: Female

DRUGS (8)
  1. SUNITINIB MALATE [Interacting]
     Active Substance: SUNITINIB MALATE
     Indication: Metastatic renal cell carcinoma
     Dosage: 50 MG, ONCE DAILY FOR 4 WEEKS FOLLOWED BY 2 WEEKS OF TREATMENT
     Dates: start: 201709
  2. CLARITHROMYCIN [Interacting]
     Active Substance: CLARITHROMYCIN
  3. METOCLOPRAMIDE [Concomitant]
     Active Substance: METOCLOPRAMIDE
     Indication: Hypertension
     Dosage: UNK
     Route: 048
  4. METOCLOPRAMIDE [Concomitant]
     Active Substance: METOCLOPRAMIDE
     Indication: Nausea
  5. PERINDOPRIL [Concomitant]
     Active Substance: PERINDOPRIL
     Indication: Nausea
     Dosage: UNK
  6. PERINDOPRIL [Concomitant]
     Active Substance: PERINDOPRIL
     Indication: Hypertension
  7. AMLODIPINE [Concomitant]
     Active Substance: AMLODIPINE BESYLATE
     Indication: Hypertension
     Dosage: UNK
  8. LEVOTHYROXINE [Concomitant]
     Active Substance: LEVOTHYROXINE
     Indication: Hypothyroidism
     Dosage: UNK

REACTIONS (4)
  - Hepatic necrosis [Fatal]
  - Acute hepatic failure [Fatal]
  - Thrombocytopenia [Fatal]
  - Drug interaction [Fatal]
